FAERS Safety Report 22187266 (Version 3)
Quarter: 2023Q2

REPORT INFORMATION
  Report Type: Spontaneous
  Country: US (occurrence: US)
  Receive Date: 20230407
  Receipt Date: 20230607
  Transmission Date: 20230721
  Serious: Yes (Death)
  Sender: FDA-Public Use
  Company Number: US-PFIZER INC-202300147069

PATIENT
  Age: 85 Year
  Sex: Male
  Weight: 77.098 kg

DRUGS (8)
  1. VYNDAMAX [Suspect]
     Active Substance: TAFAMIDIS
     Indication: Cardiac amyloidosis
     Dosage: 61 MG, 1X/DAY
     Dates: start: 202209, end: 20230330
  2. ALFUZOSIN [Concomitant]
     Active Substance: ALFUZOSIN
     Dosage: UNK, DAILY
     Dates: start: 2017, end: 2023
  3. DULOXETINE [Concomitant]
     Active Substance: DULOXETINE
     Dosage: UNK, DAILY
     Dates: start: 2021
  4. DULOXETINE [Concomitant]
     Active Substance: DULOXETINE
     Dosage: UNK
     Dates: start: 2023
  5. FUROSEMIDE [Concomitant]
     Active Substance: FUROSEMIDE
     Dosage: UNK, DAILY
     Dates: start: 202204
  6. LEVOTHYROXINE [Concomitant]
     Active Substance: LEVOTHYROXINE
     Dosage: UNK, DAILY
     Dates: start: 2018
  7. METOPROLOL [Concomitant]
     Active Substance: METOPROLOL
     Dosage: UNK, DAILY
     Dates: start: 202203
  8. XARELTO [Concomitant]
     Active Substance: RIVAROXABAN
     Dosage: UNK, DAILY
     Dates: start: 2022

REACTIONS (5)
  - Cardiac amyloidosis [Fatal]
  - Disease complication [Fatal]
  - Loss of consciousness [Fatal]
  - Fall [Fatal]
  - Dyspnoea [Fatal]

NARRATIVE: CASE EVENT DATE: 20230331
